FAERS Safety Report 6225225-4 (Version None)
Quarter: 2009Q2

REPORT INFORMATION
  Report Type: 
  Country: None (occurrence: None)
  Receive Date: 20090612
  Receipt Date: 20090409
  Transmission Date: 20091009
  Serious: No
  Sender: FDA-Public Use
  Company Number: US-ABBOTT-09P-163-0567825-00

PATIENT
  Sex: Female
  Weight: 53.572 kg

DRUGS (1)
  1. HUMIRA [Suspect]
     Indication: RHEUMATOID ARTHRITIS
     Route: 058
     Dates: start: 20050501

REACTIONS (5)
  - FALL [None]
  - LOCALISED INFECTION [None]
  - LOWER LIMB FRACTURE [None]
  - RASH [None]
  - SYNCOPE [None]
